FAERS Safety Report 20894442 (Version 1)
Quarter: 2022Q2

REPORT INFORMATION
  Report Type: Other
  Country: KR (occurrence: KR)
  Receive Date: 20220531
  Receipt Date: 20220531
  Transmission Date: 20220721
  Serious: Yes (Hospitalization, Other)
  Sender: FDA-Public Use
  Company Number: KR-CHUGAI-2022019821

PATIENT
  Age: 20 Year
  Sex: Female

DRUGS (6)
  1. ACTEMRA [Suspect]
     Active Substance: TOCILIZUMAB
     Indication: Still^s disease
     Route: 041
  2. ACTEMRA [Suspect]
     Active Substance: TOCILIZUMAB
     Route: 041
  3. ACTEMRA [Suspect]
     Active Substance: TOCILIZUMAB
     Route: 041
  4. METHOTREXATE [Concomitant]
     Active Substance: METHOTREXATE
     Indication: Still^s disease
     Dosage: UNK
     Route: 065
  5. PREDNISOLONE [Concomitant]
     Active Substance: PREDNISOLONE
     Indication: Still^s disease
     Dosage: UNK
     Route: 065
  6. CYCLOSPORINE [Concomitant]
     Active Substance: CYCLOSPORINE
     Indication: Still^s disease
     Dosage: UNK
     Route: 065

REACTIONS (15)
  - Pyrexia [Recovered/Resolved]
  - Haemophagocytic lymphohistiocytosis [Unknown]
  - Hypertransaminasaemia [Unknown]
  - Hyperferritinaemia [Unknown]
  - Abdominal tenderness [Unknown]
  - Interleukin-2 receptor increased [Unknown]
  - Epstein-Barr virus antigen positive [Unknown]
  - Thrombocytopenia [Unknown]
  - Hypertriglyceridaemia [Unknown]
  - Hypofibrinogenaemia [Unknown]
  - Lymphadenopathy [Unknown]
  - Blood lactate dehydrogenase increased [Unknown]
  - Fibrin D dimer increased [Unknown]
  - Idiopathic urticaria [Recovered/Resolved]
  - Off label use [Unknown]
